FAERS Safety Report 25974309 (Version 1)
Quarter: 2025Q4

REPORT INFORMATION
  Report Type: Spontaneous
  Country: US (occurrence: None)
  Receive Date: 20251028
  Receipt Date: 20251028
  Transmission Date: 20260118
  Serious: Yes (Death)
  Sender: FDA-CTU
  Company Number: None

PATIENT
  Age: 81 Year
  Sex: Female

DRUGS (14)
  1. OPSUMIT [Suspect]
     Active Substance: MACITENTAN
     Indication: Pulmonary hypertension
     Dosage: FREQUENCY : DAILY;?
     Route: 048
     Dates: start: 20240103, end: 20250830
  2. SILDENAFIL [Suspect]
     Active Substance: SILDENAFIL
  3. LOSARTAN [Concomitant]
     Active Substance: LOSARTAN
  4. PANTOPRAZOLE [Concomitant]
     Active Substance: PANTOPRAZOLE
  5. breyna HFAA [Concomitant]
  6. SPIRIVA RESPIMAT [Concomitant]
     Active Substance: TIOTROPIUM BROMIDE
  7. TYLENOL [Concomitant]
     Active Substance: ACETAMINOPHEN
  8. duoneb neb soln [Concomitant]
  9. albuterol HFAA [Concomitant]
  10. oxygen intranasal [Concomitant]
  11. PREDNISONE [Concomitant]
     Active Substance: PREDNISONE
  12. LORAZEPAM [Concomitant]
     Active Substance: LORAZEPAM
  13. MORPHINE [Concomitant]
     Active Substance: MORPHINE
  14. GABAPENTIN [Concomitant]
     Active Substance: GABAPENTIN

REACTIONS (2)
  - Chronic obstructive pulmonary disease [None]
  - Respiratory distress [None]

NARRATIVE: CASE EVENT DATE: 20250729
